FAERS Safety Report 22206220 (Version 1)
Quarter: 2023Q2

REPORT INFORMATION
  Report Type: Spontaneous
  Country: US (occurrence: None)
  Receive Date: 20230412
  Receipt Date: 20230412
  Transmission Date: 20230721
  Serious: Yes (Hospitalization)
  Sender: FDA-Public Use
  Company Number: None

PATIENT
  Sex: Female

DRUGS (3)
  1. AMBRISENTAN [Suspect]
     Active Substance: AMBRISENTAN
     Indication: Pulmonary arterial hypertension
     Dosage: 10MG DAILY BY MOUTH?
     Route: 048
     Dates: start: 20190802
  2. TADALAFIL [Suspect]
     Active Substance: TADALAFIL
  3. TREPROSTINIL [Concomitant]
     Active Substance: TREPROSTINIL

REACTIONS (4)
  - Overdose [None]
  - Hypotension [None]
  - Haemorrhagic diathesis [None]
  - Varices oesophageal [None]
